FAERS Safety Report 5123430-1 (Version None)
Quarter: 2006Q4

REPORT INFORMATION
  Report Type: 
  Country: None (occurrence: None)
  Receive Date: 20061005
  Receipt Date: 20060927
  Transmission Date: 20070319
  Serious: Yes (Other)
  Sender: FDA-Public Use
  Company Number: 2006116917

PATIENT
  Sex: Male

DRUGS (1)
  1. ZELDOX  (CAPSULES) (ZIPRASIDONE) [Suspect]
     Indication: PSYCHOTIC DISORDER
     Dosage: 160 MG (80 MG, 2 IN 1 D), ORAL
     Route: 048
     Dates: start: 20060101

REACTIONS (3)
  - DIZZINESS [None]
  - INTENTIONAL OVERDOSE [None]
  - SOMNOLENCE [None]
